FAERS Safety Report 15158363 (Version 2)
Quarter: 2018Q3

REPORT INFORMATION
  Report Type: Spontaneous
  Country: US (occurrence: US)
  Receive Date: 20180718
  Receipt Date: 20180801
  Transmission Date: 20181010
  Serious: No
  Sender: FDA-Public Use
  Company Number: US-SHIRE-US201826543

PATIENT
  Age: 65 Year

DRUGS (3)
  1. XIIDRA [Suspect]
     Active Substance: LIFITEGRAST
     Indication: BLEPHARITIS
  2. XIIDRA [Suspect]
     Active Substance: LIFITEGRAST
     Indication: DRY EYE
     Route: 047
  3. XIIDRA [Suspect]
     Active Substance: LIFITEGRAST
     Indication: SEBORRHOEIC DERMATITIS

REACTIONS (3)
  - Drug ineffective [Unknown]
  - Lacrimation increased [Not Recovered/Not Resolved]
  - Instillation site pain [Not Recovered/Not Resolved]
